FAERS Safety Report 8045993-9 (Version None)
Quarter: 2012Q1

REPORT INFORMATION
  Report Type: 
  Country: None (occurrence: None)
  Receive Date: 20120113
  Receipt Date: 20120112
  Transmission Date: 20120608
  Serious: No
  Sender: FDA-Public Use
  Company Number: US-PFIZER INC-2012010026

PATIENT
  Sex: Female
  Weight: 76.19 kg

DRUGS (7)
  1. CHANTIX [Suspect]
     Dosage: 1 MG, 2X/DAY
     Route: 048
     Dates: end: 20111201
  2. CHANTIX [Suspect]
     Dosage: UNK
     Route: 048
     Dates: start: 20111001
  3. ATENOLOL [Concomitant]
     Indication: HYPERTENSION
     Dosage: UNK
  4. CHANTIX [Suspect]
     Dosage: 1 MG, 2X/DAY
     Route: 048
     Dates: start: 20110101, end: 20110901
  5. LISINOPRIL [Concomitant]
     Indication: HYPERTENSION
     Dosage: UNK
  6. CHANTIX [Suspect]
     Indication: SMOKING CESSATION THERAPY
     Dosage: 0.5 MG, 1X/DAY
     Route: 048
     Dates: start: 20110801, end: 20110101
  7. SENNA [Concomitant]
     Indication: CONSTIPATION
     Dosage: UNK

REACTIONS (1)
  - DRUG INEFFECTIVE [None]
